FAERS Safety Report 22120664 (Version 1)
Quarter: 2023Q1

REPORT INFORMATION
  Report Type: Report from Study
  Country: CA (occurrence: CA)
  Receive Date: 20230321
  Receipt Date: 20230321
  Transmission Date: 20230417
  Serious: Yes (Hospitalization, Disabling, Other)
  Sender: FDA-Public Use
  Company Number: CA-SA-SAC20230317001034

PATIENT
  Age: 51 Year
  Sex: Male

DRUGS (1)
  1. SEVELAMER HYDROCHLORIDE [Suspect]
     Active Substance: SEVELAMER HYDROCHLORIDE
     Indication: Chronic kidney disease
     Dosage: 800MG
     Route: 048
     Dates: start: 202005

REACTIONS (2)
  - Diabetic complication [Unknown]
  - Leg amputation [Unknown]

NARRATIVE: CASE EVENT DATE: 20210709
